FAERS Safety Report 9981645 (Version 1)
Quarter: 2014Q1

REPORT INFORMATION
  Report Type: Report from Study
  Country: US (occurrence: US)
  Receive Date: 20140307
  Receipt Date: 20140307
  Transmission Date: 20141002
  Serious: No
  Sender: FDA-Public Use
  Company Number: US-ABBVIE-13P-163-1180048-00

PATIENT
  Age: 49 Year
  Sex: Male

DRUGS (5)
  1. HUMIRA [Suspect]
     Indication: PSORIASIS
     Dates: start: 20131209, end: 20131209
  2. HUMIRA [Suspect]
     Dates: start: 20131216
  3. XANAX [Concomitant]
     Indication: ANXIETY
     Dosage: AT HS
  4. XANAX [Concomitant]
     Indication: INSOMNIA
  5. ZYPREXA [Concomitant]
     Indication: DEPRESSION
     Dosage: EVERY PM

REACTIONS (2)
  - Wrong patient received medication [Unknown]
  - Psoriasis [Recovering/Resolving]
